FAERS Safety Report 9084712 (Version 2)
Quarter: 2013Q1

REPORT INFORMATION
  Report Type: Spontaneous
  Country: US (occurrence: US)
  Receive Date: 20130218
  Receipt Date: 20130319
  Transmission Date: 20140127
  Serious: Yes (Death, Hospitalization, Other)
  Sender: FDA-Public Use
  Company Number: PHEH2013US003650

PATIENT
  Sex: Male

DRUGS (9)
  1. AFINITOR [Suspect]
     Indication: BREAST CANCER
     Dosage: 5 MG/DAY
     Dates: start: 20120831
  2. AROMASIN [Suspect]
     Indication: BREAST CANCER
     Dosage: 25 MG
     Route: 048
     Dates: start: 20120919, end: 20121015
  3. OXYCODONE [Concomitant]
     Dosage: 5 MG, Q4H
  4. COMPAZINE [Concomitant]
     Dosage: 10 MG, Q6H
  5. TUSSIONEX [Concomitant]
  6. VIT D [Concomitant]
     Dosage: 4000 U PER DAY
  7. EXEMESTANE [Concomitant]
     Dosage: 25 MG/DAY
  8. LASIX [Concomitant]
     Dosage: 20 MG/DAY
  9. SYMBICORT [Concomitant]
     Dosage: UNK

REACTIONS (9)
  - Breast cancer [Fatal]
  - Malignant neoplasm progression [Fatal]
  - Dyspnoea at rest [Unknown]
  - Dyspnoea exertional [Unknown]
  - Pleural effusion [Unknown]
  - Back pain [Recovering/Resolving]
  - Dry skin [Unknown]
  - Decreased appetite [Unknown]
  - Drug ineffective [Unknown]
